FAERS Safety Report 12201771 (Version 1)
Quarter: 2016Q1

REPORT INFORMATION
  Report Type: Spontaneous
  Country: US (occurrence: US)
  Receive Date: 20160322
  Receipt Date: 20160322
  Transmission Date: 20160526
  Serious: No
  Sender: FDA-Public Use
  Company Number: US-SA-2016SA033880

PATIENT
  Sex: Male

DRUGS (1)
  1. NASACORT ALLERGY 24HR [Suspect]
     Active Substance: TRIAMCINOLONE ACETONIDE
     Indication: NASAL CONGESTION
     Dosage: START DATE: COUPLE OF WEEKS AGO?START DATE: COUPLE OF DAYS AGO?DOSE:110MCG EACH NARES
     Route: 045

REACTIONS (1)
  - Nasopharyngitis [Not Recovered/Not Resolved]
